FAERS Safety Report 8678369 (Version 2)
Quarter: 2012Q4

REPORT INFORMATION
  Report Type: 
  Country: US (occurrence: US)
  Receive Date: 20120723
  Receipt Date: 20120920
  Transmission Date: 20130627
  Serious: Yes (Other)
  Sender: FDA-Public Use
  Company Number: US-BAYER-2012-072664

PATIENT
  Age: 40 Year
  Sex: Female
  Weight: 94.79 kg

DRUGS (2)
  1. MIRENA [Suspect]
     Indication: CONTRACEPTION
     Dosage: UNK
     Dates: start: 20120125, end: 20120706
  2. MIRENA [Suspect]
     Indication: VAGINAL HAEMORRHAGE

REACTIONS (4)
  - Vaginal haemorrhage [None]
  - Vaginal haemorrhage [Recovering/Resolving]
  - Pain [None]
  - Menstruation irregular [Recovering/Resolving]
